FAERS Safety Report 11929317 (Version 2)
Quarter: 2016Q1

REPORT INFORMATION
  Report Type: Spontaneous
  Country: US (occurrence: US)
  Receive Date: 20160120
  Receipt Date: 20160304
  Transmission Date: 20160526
  Serious: Yes (Hospitalization, Other)
  Sender: FDA-Public Use
  Company Number: US-AMGEN-USASP2016004847

PATIENT
  Age: 82 Year
  Sex: Female

DRUGS (1)
  1. ENBREL [Suspect]
     Active Substance: ETANERCEPT
     Indication: PRODUCT USED FOR UNKNOWN INDICATION
     Dosage: UNK UNK, UNK
     Route: 065

REACTIONS (10)
  - Device failure [Unknown]
  - Device issue [Unknown]
  - Pneumonia [Recovered/Resolved]
  - Chills [Recovered/Resolved]
  - Drug dose omission [Unknown]
  - Pain in extremity [Not Recovered/Not Resolved]
  - Colonoscopy [Recovered/Resolved]
  - Cholecystectomy [Recovered/Resolved]
  - Malaise [Unknown]
  - Injection site pain [Unknown]

NARRATIVE: CASE EVENT DATE: 201601
